FAERS Safety Report 5070159-4 (Version None)
Quarter: 2006Q3

REPORT INFORMATION
  Report Type: 
  Country: None (occurrence: None)
  Receive Date: 20060803
  Receipt Date: 20060725
  Transmission Date: 20061208
  Serious: Yes (Other)
  Sender: FDA-Public Use
  Company Number: PHBS2006JP11245

PATIENT
  Sex: Female

DRUGS (1)
  1. METHERGINE [Suspect]
     Dosage: UNK, UNK
     Route: 063
     Dates: start: 20060721

REACTIONS (2)
  - DRUG EXPOSURE VIA BREAST MILK [None]
  - HAEMATOCHEZIA [None]
